FAERS Safety Report 23068576 (Version 1)
Quarter: 2023Q4

REPORT INFORMATION
  Report Type: Spontaneous
  Country: DE (occurrence: DE)
  Receive Date: 20231016
  Receipt Date: 20231016
  Transmission Date: 20240109
  Serious: Yes (Other)
  Sender: FDA-Public Use
  Company Number: None

PATIENT
  Sex: Male

DRUGS (1)
  1. OLANZAPINE [Suspect]
     Active Substance: OLANZAPINE
     Indication: Product used for unknown indication
     Dosage: 2.5MG TO 15MG; USUALLY 5 MG
     Dates: start: 2019, end: 2023

REACTIONS (2)
  - Hypothyroidism [Not Recovered/Not Resolved]
  - Liver function test increased [Not Recovered/Not Resolved]
